FAERS Safety Report 4776352-X (Version None)
Quarter: 2005Q3

REPORT INFORMATION
  Report Type: 
  Country: None (occurrence: None)
  Receive Date: 20050921
  Receipt Date: 20050908
  Transmission Date: 20060218
  Serious: Yes (Hospitalization)
  Sender: FDA-Public Use
  Company Number: 2003165537FR

PATIENT
  Age: 66 Year
  Sex: Female

DRUGS (8)
  1. DOXORUBICIN HYDROCHLORIDE [Suspect]
     Indication: HODGKIN'S DISEASE
     Dosage: 50 MG (CYCLICAL), INTRAVANEOUS
     Route: 042
     Dates: start: 19810803, end: 19820827
  2. VINCRISTINE [Suspect]
     Indication: HODGKIN'S DISEASE
     Dosage: CYCLICAL, INTRAVENOUS
     Route: 042
     Dates: start: 19810211, end: 19810609
  3. NATULAN (PROCARBAZINE HYDROCHLORIDE) [Suspect]
     Indication: HODGKIN'S DISEASE
     Dosage: CYCLICAL, ORAL
     Route: 048
     Dates: start: 19810211, end: 19810609
  4. VINBLASTINE SULFATE [Suspect]
     Indication: HODGKIN'S DISEASE
     Dosage: CYCLICAL, INTRAVENOUS
     Route: 042
     Dates: start: 19810803, end: 19830104
  5. DACARBAZINE [Suspect]
     Indication: HODGKIN'S DISEASE
     Dosage: CYCLICAL, INTRAVENOUS
     Route: 042
     Dates: start: 19810803, end: 19830104
  6. BLEOMYCIN [Suspect]
     Indication: HODGKIN'S DISEASE
     Dosage: CYCLICAL, INTRAVENOUS
     Route: 042
     Dates: start: 19810803, end: 19830104
  7. CARYOLYSINE (CHLORMETHINE HYDROCHLORIDE) [Suspect]
     Indication: HODGKIN'S DISEASE
     Dosage: CYCLICAL, INTRAVENOUS
     Route: 042
     Dates: start: 19810211, end: 19810609
  8. PREDNISONE [Concomitant]

REACTIONS (1)
  - BREAST CANCER FEMALE [None]
